FAERS Safety Report 7203347-9 (Version None)
Quarter: 2010Q4

REPORT INFORMATION
  Report Type: 
  Country: None (occurrence: None)
  Receive Date: 20101215
  Receipt Date: 20101202
  Transmission Date: 20110411
  Serious: Yes (Other)
  Sender: FDA-Public Use
  Company Number: GER/UKI/10/0016835

PATIENT
  Age: 44 Year
  Sex: Male

DRUGS (2)
  1. FEXOFENADINE HCL [Suspect]
     Indication: ANGIOEDEMA
     Dosage: 120 MG, 1 IN 1 D, ORAL
     Route: 048
     Dates: start: 20100923, end: 20101129
  2. IBUPROFEN [Concomitant]

REACTIONS (2)
  - DIZZINESS [None]
  - TACHYCARDIA [None]
